FAERS Safety Report 7198272-6 (Version None)
Quarter: 2010Q4

REPORT INFORMATION
  Report Type: 
  Country: None (occurrence: None)
  Receive Date: 20101227
  Receipt Date: 20101213
  Transmission Date: 20110411
  Serious: Yes (Other)
  Sender: FDA-Public Use
  Company Number: PHHY2010MX36807

PATIENT
  Sex: Female

DRUGS (2)
  1. DIOVAN HCT [Suspect]
     Indication: HYPERTENSION
     Dosage: 1 TABLET (160/25 MG) DAILY
     Route: 048
     Dates: start: 20091118
  2. DIOVAN HCT [Suspect]
     Dosage: TAB. (160/12.5MG) DAILY
     Dates: start: 20100416

REACTIONS (9)
  - BLOOD PRESSURE DECREASED [None]
  - BONE FISSURE [None]
  - DIZZINESS [None]
  - FALL [None]
  - GAIT DISTURBANCE [None]
  - HEAD DISCOMFORT [None]
  - HEADACHE [None]
  - LOWER LIMB FRACTURE [None]
  - SPLINT APPLICATION [None]
